FAERS Safety Report 7108933-2 (Version None)
Quarter: 2010Q4

REPORT INFORMATION
  Report Type: 
  Country: None (occurrence: None)
  Receive Date: 20101117
  Receipt Date: 20101103
  Transmission Date: 20110411
  Serious: Yes (Other)
  Sender: FDA-Public Use
  Company Number: IE-PURDUE-USA-2010-0051942

PATIENT
  Sex: Male

DRUGS (6)
  1. TRAMADOL HCL [Suspect]
     Indication: SPINAL COLUMN STENOSIS
     Dosage: 100 MG, DAILY
     Route: 048
     Dates: start: 20101017, end: 20101018
  2. TRAMADOL HCL [Suspect]
     Dosage: 200 MG, DAILY
     Route: 048
     Dates: start: 20101019, end: 20101019
  3. METHOTREXATE [Concomitant]
     Indication: PRODUCT USED FOR UNKNOWN INDICATION
     Dosage: 20 MG, WEEKLY
  4. RISEDRONATE SODIUM [Concomitant]
     Indication: PRODUCT USED FOR UNKNOWN INDICATION
  5. FOLIC ACID [Concomitant]
     Indication: PRODUCT USED FOR UNKNOWN INDICATION
  6. ARTHROTEC [Concomitant]
     Indication: PAIN
     Dosage: 1 UNK, QOD

REACTIONS (5)
  - BALANCE DISORDER [None]
  - FATIGUE [None]
  - HEADACHE [None]
  - HEART RATE INCREASED [None]
  - HYPERSOMNIA [None]
